FAERS Safety Report 16038116 (Version 1)
Quarter: 2019Q1

REPORT INFORMATION
  Report Type: Report from Study
  Country: US (occurrence: US)
  Receive Date: 20190305
  Receipt Date: 20190305
  Transmission Date: 20190418
  Serious: Yes (Other)
  Sender: FDA-Public Use
  Company Number: US-ACTELION-A-NJ2018-165473

PATIENT
  Sex: Female
  Weight: 45.35 kg

DRUGS (3)
  1. COUMADIN [Concomitant]
     Active Substance: WARFARIN SODIUM
  2. DILTIAZEM. [Concomitant]
     Active Substance: DILTIAZEM
  3. TRACLEER [Suspect]
     Active Substance: BOSENTAN
     Indication: PULMONARY ARTERIAL HYPERTENSION
     Dosage: 125 MG, BID
     Route: 048

REACTIONS (10)
  - Product dose omission [Unknown]
  - Gallbladder disorder [Unknown]
  - Surgery [Unknown]
  - Headache [Unknown]
  - Malaise [Unknown]
  - Facial pain [Unknown]
  - Mobility decreased [Unknown]
  - Neck pain [Unknown]
  - Overdose [Unknown]
  - Nausea [Unknown]
